FAERS Safety Report 4926659-8 (Version None)
Quarter: 2006Q1

REPORT INFORMATION
  Report Type: 
  Country: None (occurrence: None)
  Receive Date: 20060228
  Receipt Date: 20050502
  Transmission Date: 20060701
  Serious: No
  Sender: FDA-Public Use
  Company Number: US-GLAXOSMITHKLINE-A0559338A

PATIENT
  Age: 20 Year
  Sex: Female

DRUGS (2)
  1. LAMICTAL [Suspect]
     Indication: EPILEPSY
     Dosage: 25MG PER DAY
     Route: 048
     Dates: start: 20050425, end: 20050516
  2. DEPAKOTE [Concomitant]

REACTIONS (4)
  - GINGIVAL PAIN [None]
  - LIP DRY [None]
  - RASH [None]
  - SWELLING FACE [None]
